FAERS Safety Report 4760439-1 (Version None)
Quarter: 2005Q3

REPORT INFORMATION
  Report Type: 
  Country: None (occurrence: None)
  Receive Date: 20050826
  Receipt Date: 20050207
  Transmission Date: 20060218
  Serious: Yes (Other)
  Sender: FDA-Public Use
  Company Number: USA-2005-0018749

PATIENT
  Age: 22 Year
  Sex: Male

DRUGS (5)
  1. OXYCONTIN [Suspect]
  2. VICODIN [Suspect]
  3. XANAX [Concomitant]
  4. VALIUM [Suspect]
  5. ADDERALL 10 [Suspect]

REACTIONS (2)
  - DRUG DEPENDENCE [None]
  - POLYSUBSTANCE ABUSE [None]
